FAERS Safety Report 7204691 (Version 21)
Quarter: 2013Q4

REPORT INFORMATION
  Report Type: Spontaneous
  Country: US (occurrence: US)
  Receive Date: 20091208
  Receipt Date: 20131211
  Transmission Date: 20140711
  Serious: Yes (Hospitalization, Other)
  Sender: FDA-Public Use
  Company Number: PHEH2009US16951

PATIENT
  Age: 58 Year
  Sex: Female

DRUGS (25)
  1. AREDIA [Suspect]
  2. ZOMETA [Suspect]
     Route: 042
  3. PROCRIT [Concomitant]
  4. TOPROL XL [Concomitant]
  5. SYNTHROID [Concomitant]
     Dosage: 0.01 MG, UNK
  6. LOTREL [Concomitant]
     Dosage: 5/20 DAILY
  7. DIOVAN [Concomitant]
     Dosage: 150 MG, UNK
  8. COMBIVENT [Concomitant]
  9. CLONAZEPAM [Concomitant]
  10. LASIX [Concomitant]
  11. OMEPRAZOLE [Concomitant]
  12. PAXIL [Concomitant]
  13. PERIDEX [Concomitant]
  14. TRUVADA [Concomitant]
  15. VIRAMUNE [Concomitant]
  16. ZYPREXA [Concomitant]
  17. TRAZODONE [Concomitant]
  18. NEXIUM [Concomitant]
  19. OXYCONTIN [Concomitant]
  20. HEPARIN [Concomitant]
     Route: 042
  21. WARFARIN SODIUM [Concomitant]
     Dosage: 5 MG, UNK
     Route: 048
  22. ALPRAZOLAM [Concomitant]
     Dosage: 0.5 MG, TID
     Route: 048
  23. HYDROCODONE W/APAP [Concomitant]
     Dosage: 1 DF, Q6H
  24. ALBUTEROL [Concomitant]
  25. DOXYCYCLINE HYCLATE [Concomitant]
     Dosage: 100 MG, UNK
     Route: 048

REACTIONS (134)
  - Pneumonia [Unknown]
  - Asthenia [Unknown]
  - Fatigue [Unknown]
  - Diarrhoea [Unknown]
  - Plasma cell myeloma [Unknown]
  - Hepatitis C [Unknown]
  - Osteonecrosis of jaw [Unknown]
  - Injury [Unknown]
  - Pain [Unknown]
  - Anxiety [Unknown]
  - Face oedema [Unknown]
  - Decreased interest [Unknown]
  - Erythema [Unknown]
  - Fistula [Unknown]
  - Ecchymosis [Unknown]
  - Exposed bone in jaw [Unknown]
  - Dental caries [Unknown]
  - Tooth abscess [Unknown]
  - Tooth loss [Unknown]
  - Osteomyelitis [Unknown]
  - Mastication disorder [Unknown]
  - Mouth haemorrhage [Unknown]
  - Pain in jaw [Unknown]
  - Secretion discharge [Unknown]
  - Primary sequestrum [Unknown]
  - Bacterial disease carrier [Unknown]
  - Hypertension [Unknown]
  - Large intestine polyp [Unknown]
  - Hypothyroidism [Unknown]
  - Deep vein thrombosis [Unknown]
  - Myelodysplastic syndrome [Unknown]
  - Iron deficiency anaemia [Unknown]
  - Breast cancer [Unknown]
  - Basedow^s disease [Unknown]
  - Renal failure [Unknown]
  - Cholelithiasis [Unknown]
  - Gallbladder enlargement [Unknown]
  - Biliary dilatation [Unknown]
  - Hernia pain [Unknown]
  - Cellulitis [Unknown]
  - Sepsis [Unknown]
  - Acquired immunodeficiency syndrome [Unknown]
  - Chest pain [Unknown]
  - Ejection fraction decreased [Unknown]
  - Chronic sinusitis [Unknown]
  - Retinopathy [Unknown]
  - Cataract [Unknown]
  - Osteopenia [Unknown]
  - Chronic obstructive pulmonary disease [Unknown]
  - Bronchial secretion retention [Unknown]
  - Hypoventilation [Unknown]
  - Thrombophlebitis superficial [Unknown]
  - Depression [Unknown]
  - Hepatic steatosis [Unknown]
  - Respiratory failure [Unknown]
  - Limb injury [Unknown]
  - Spinal osteoarthritis [Unknown]
  - Abdominal hernia [Unknown]
  - Coronary artery disease [Unknown]
  - Hip fracture [Unknown]
  - Cardiomegaly [Unknown]
  - Lacunar infarction [Unknown]
  - Nodule [Unknown]
  - Local swelling [Unknown]
  - Myalgia [Unknown]
  - Mental status changes [Unknown]
  - Weight increased [Unknown]
  - Palpitations [Unknown]
  - Dyspnoea [Unknown]
  - Hyperkinesia [Unknown]
  - Hypophosphataemia [Unknown]
  - Hypotension [Unknown]
  - Gastrooesophageal reflux disease [Unknown]
  - Actinomycosis [Unknown]
  - Thrombocytopenia [Unknown]
  - Urinary tract infection [Unknown]
  - Hyperglycaemia [Unknown]
  - Rash [Unknown]
  - Dehydration [Unknown]
  - Rhinitis allergic [Unknown]
  - Occult blood [Unknown]
  - Osteoarthritis [Unknown]
  - Haematoma [Unknown]
  - Decreased appetite [Unknown]
  - Bone cancer [Unknown]
  - Leukaemia [Unknown]
  - Thyroid cancer [Unknown]
  - Femur fracture [Unknown]
  - Pathological fracture [Unknown]
  - Toxic neuropathy [Unknown]
  - Oral candidiasis [Unknown]
  - Cholestasis [Unknown]
  - Foot fracture [Unknown]
  - Vascular calcification [Unknown]
  - Gastritis erosive [Unknown]
  - Pulmonary embolism [Unknown]
  - Pericardial effusion [Unknown]
  - Septic shock [Unknown]
  - Inflammation [Unknown]
  - Excessive granulation tissue [Unknown]
  - Pneumonitis [Unknown]
  - HIV test positive [Unknown]
  - Splenic rupture [Unknown]
  - Cardiac failure congestive [Unknown]
  - Essential hypertension [Unknown]
  - Pulmonary fibrosis [Unknown]
  - Upper respiratory tract infection [Unknown]
  - Hyperthyroidism [Unknown]
  - Osteoporosis [Unknown]
  - Purulent discharge [Unknown]
  - Periodontal disease [Unknown]
  - Bone lesion [Unknown]
  - Tachycardia [Unknown]
  - Pulmonary mass [Unknown]
  - Atelectasis [Unknown]
  - Myopathy [Unknown]
  - Diastolic dysfunction [Unknown]
  - Anaemia macrocytic [Unknown]
  - Haemorrhoids [Unknown]
  - Asthma [Unknown]
  - Oedema peripheral [Unknown]
  - Joint swelling [Unknown]
  - Insomnia [Unknown]
  - Malnutrition [Unknown]
  - Intestinal ischaemia [Unknown]
  - Gastrointestinal necrosis [Unknown]
  - Renal failure acute [Unknown]
  - Hypokalaemia [Unknown]
  - Acute respiratory failure [Unknown]
  - Hepatic failure [Unknown]
  - Large intestinal obstruction [Unknown]
  - Hypoglycaemia [Unknown]
  - Hypoxia [Unknown]
  - Metabolic acidosis [Unknown]
